FAERS Safety Report 14246480 (Version 1)
Quarter: 2017Q4

REPORT INFORMATION
  Report Type: Report from Study
  Country: US (occurrence: US)
  Receive Date: 20171204
  Receipt Date: 20171204
  Transmission Date: 20180321
  Serious: No
  Sender: FDA-Public Use
  Company Number: PHEH2017US038935

PATIENT
  Sex: Female

DRUGS (1)
  1. GILENYA [Suspect]
     Active Substance: FINGOLIMOD HYDROCHLORIDE
     Indication: MULTIPLE SCLEROSIS
     Dosage: UNK UNK, QD
     Route: 048
     Dates: start: 20170929

REACTIONS (6)
  - Pain in extremity [Unknown]
  - Memory impairment [Unknown]
  - Tremor [Unknown]
  - Ocular discomfort [Not Recovered/Not Resolved]
  - Headache [Unknown]
  - Eye pain [Not Recovered/Not Resolved]
